FAERS Safety Report 4462780-9 (Version None)
Quarter: 2004Q3

REPORT INFORMATION
  Report Type: 
  Country: None (occurrence: None)
  Receive Date: 20040927
  Receipt Date: 20040921
  Transmission Date: 20050211
  Serious: Yes (Hospitalization)
  Sender: FDA-Public Use
  Company Number: US-2004-026528

PATIENT
  Age: 55 Year
  Sex: Female

DRUGS (1)
  1. CLIMARA [Suspect]
     Indication: HORMONE REPLACEMENT THERAPY
     Dosage: 0.045 MG/D, TRANSDERMAL
     Route: 062
     Dates: end: 20040501

REACTIONS (2)
  - APPLICATION SITE INFECTION [None]
  - STAPHYLOCOCCAL INFECTION [None]
